FAERS Safety Report 7950687-1 (Version None)
Quarter: 2011Q4

REPORT INFORMATION
  Report Type: 
  Country: None (occurrence: None)
  Receive Date: 20111201
  Receipt Date: 20111121
  Transmission Date: 20120403
  Serious: Yes (Hospitalization)
  Sender: FDA-Public Use
  Company Number: US-BAYER-2011-112490

PATIENT
  Sex: Female

DRUGS (3)
  1. YASMIN [Suspect]
     Dosage: UNK
     Dates: start: 20090101, end: 20100101
  2. DROSPIRENONE AND ETHINYL ESTRADIOL [Suspect]
     Dosage: UNK
     Dates: start: 20090101, end: 20100101
  3. YAZ [Suspect]
     Dosage: UNK
     Dates: start: 20070101, end: 20100101

REACTIONS (3)
  - PAIN [None]
  - PULMONARY EMBOLISM [None]
  - INJURY [None]
